FAERS Safety Report 4725119-7 (Version None)
Quarter: 2005Q3

REPORT INFORMATION
  Report Type: 
  Country: None (occurrence: None)
  Receive Date: 20050726
  Receipt Date: 20050712
  Transmission Date: 20060218
  Serious: Yes (Hospitalization)
  Sender: FDA-Public Use
  Company Number: GXKR2005US01328

PATIENT
  Age: 15 Year
  Sex: Male
  Weight: 54 kg

DRUGS (4)
  1. BUPROPION (NGX)(BUPROPION) [Suspect]
     Indication: ATTENTION DEFICIT/HYPERACTIVITY DISORDER
     Dosage: 150 MG, BID
  2. RISPERIDONE [Suspect]
     Indication: MAJOR DEPRESSION
     Dosage: 0.25 MG, BID
  3. ATOMOXETINE (ATOMOXETINE) [Suspect]
     Indication: ATTENTION DEFICIT/HYPERACTIVITY DISORDER
     Dosage: INTENTIONAL OVERDOSE OF 1200 MG
  4. ALPRAZOLAM [Concomitant]

REACTIONS (12)
  - ANXIETY [None]
  - CONFUSIONAL STATE [None]
  - CONVULSION [None]
  - DEPRESSION [None]
  - DRUG INTERACTION [None]
  - DRY MOUTH [None]
  - ELECTROCARDIOGRAM QT CORRECTED INTERVAL PROLONGED [None]
  - HEART RATE INCREASED [None]
  - INTENTIONAL MISUSE [None]
  - OVERDOSE [None]
  - POSTICTAL STATE [None]
  - TREMOR [None]
